FAERS Safety Report 5346931-X (Version None)
Quarter: 2007Q2

REPORT INFORMATION
  Report Type: 
  Country: None (occurrence: None)
  Receive Date: 20070430
  Receipt Date: 20070221
  Transmission Date: 20071010
  Serious: No
  Sender: FDA-Public Use
  Company Number: 261037

PATIENT
  Age: 78 Year
  Sex: Female
  Weight: 68 kg

DRUGS (6)
  1. LEVEMIR         (INSULIN DETEMIR) [Suspect]
     Indication: INSULIN-REQUIRING TYPE II DIABETES MELLITUS
     Dosage: 45 LU, QD, SUBCUTANEOUS
     Route: 058
     Dates: start: 20070201
  2. DIOVAN [Concomitant]
  3. METFORMIN HCL [Concomitant]
  4. ASPIRIN [Concomitant]
  5. FLAXSEED OIL [Concomitant]
  6. ASCORBIC ACID [Concomitant]

REACTIONS (1)
  - WEIGHT DECREASED [None]
